FAERS Safety Report 6381813-6 (Version None)
Quarter: 2009Q3

REPORT INFORMATION
  Report Type: 
  Country: None (occurrence: None)
  Receive Date: 20090925
  Receipt Date: 20090918
  Transmission Date: 20100115
  Serious: Yes (Life-Threatening)
  Sender: FDA-Public Use
  Company Number: 384335

PATIENT
  Age: 43 Year
  Sex: Male

DRUGS (1)
  1. SODIUM BICARBONATE IN PLASTIC CONTAINER [Suspect]
     Indication: METABOLIC ACIDOSIS
     Dosage: 45 MEQ/H, INTRAVENOUS DRIP
     Route: 041
     Dates: start: 20090611, end: 20090611

REACTIONS (6)
  - BLOOD CALCIUM DECREASED [None]
  - BLOOD MAGNESIUM DECREASED [None]
  - CONGESTIVE CARDIOMYOPATHY [None]
  - HAEMODYNAMIC INSTABILITY [None]
  - HYPOKALAEMIA [None]
  - VENTRICULAR TACHYCARDIA [None]
